FAERS Safety Report 11182551 (Version 2)
Quarter: 2015Q3

REPORT INFORMATION
  Report Type: Spontaneous
  Country: US (occurrence: US)
  Receive Date: 20150611
  Receipt Date: 20150914
  Transmission Date: 20151125
  Serious: No
  Sender: FDA-Public Use
  Company Number: US-ASTELLAS-2015US017295

PATIENT
  Age: 68 Year
  Sex: Male

DRUGS (5)
  1. XTANDI [Suspect]
     Active Substance: ENZALUTAMIDE
     Indication: PROSTATE CANCER METASTATIC
     Dosage: 120 MG (40MG X 3 CAPSULES), ONCE DAILY
     Route: 065
     Dates: start: 201506
  2. RADIUM [Suspect]
     Active Substance: RADIUM
     Indication: PRODUCT USED FOR UNKNOWN INDICATION
     Dosage: UNK, UNKNOWN FREQ.
     Route: 065
  3. XTANDI [Suspect]
     Active Substance: ENZALUTAMIDE
     Indication: METASTASES TO BONE
  4. XTANDI [Suspect]
     Active Substance: ENZALUTAMIDE
     Indication: METASTASES TO LYMPH NODES
  5. FENTANYL. [Suspect]
     Active Substance: FENTANYL
     Indication: PRODUCT USED FOR UNKNOWN INDICATION
     Dosage: UNK, UNKNOWN FREQ.
     Route: 065

REACTIONS (8)
  - Underdose [Unknown]
  - Nervousness [Not Recovered/Not Resolved]
  - Panic attack [Not Recovered/Not Resolved]
  - Decreased interest [Not Recovered/Not Resolved]
  - Pain [Recovering/Resolving]
  - Psychomotor hyperactivity [Not Recovered/Not Resolved]
  - Insomnia [Not Recovered/Not Resolved]
  - Restlessness [Not Recovered/Not Resolved]

NARRATIVE: CASE EVENT DATE: 201506
